FAERS Safety Report 11627952 (Version 2)
Quarter: 2015Q4

REPORT INFORMATION
  Report Type: Spontaneous
  Country: FR (occurrence: FR)
  Receive Date: 20151014
  Receipt Date: 20151105
  Transmission Date: 20160304
  Serious: Yes (Other)
  Sender: FDA-Public Use
  Company Number: FR-ROCHE-1644822

PATIENT
  Sex: Female

DRUGS (6)
  1. XOLAIR [Suspect]
     Active Substance: OMALIZUMAB
     Indication: ASTHMA
     Route: 058
     Dates: start: 20150526, end: 20150628
  2. SEROPLEX [Concomitant]
     Active Substance: ESCITALOPRAM OXALATE
  3. SINGULAIR [Concomitant]
     Active Substance: MONTELUKAST SODIUM
     Route: 065
  4. AERIUS [Concomitant]
     Active Substance: DESLORATADINE
     Route: 065
  5. PARIET [Concomitant]
     Active Substance: RABEPRAZOLE SODIUM
  6. VENTOLINE [Concomitant]
     Active Substance: ALBUTEROL

REACTIONS (8)
  - Asthma [Recovered/Resolved]
  - Cough [Recovered/Resolved]
  - Pyrexia [Recovered/Resolved]
  - Rhinitis [Recovered/Resolved]
  - Rhinitis [Recovered/Resolved]
  - Sarcoidosis [Unknown]
  - Hypersensitivity [Unknown]
  - Respiratory distress [Recovered/Resolved]

NARRATIVE: CASE EVENT DATE: 20150526
